FAERS Safety Report 12088544 (Version 1)
Quarter: 2016Q1

REPORT INFORMATION
  Report Type: Spontaneous
  Country: US (occurrence: None)
  Receive Date: 20160216
  Receipt Date: 20160216
  Transmission Date: 20160526
  Serious: Yes (Disabling)
  Sender: FDA-Public Use
  Company Number: None

PATIENT
  Age: 55 Year
  Sex: Female
  Weight: 78.02 kg

DRUGS (10)
  1. CLONAZEPAM. [Concomitant]
     Active Substance: CLONAZEPAM
  2. ASACOL [Concomitant]
     Active Substance: MESALAMINE
  3. CLOBETASOL [Concomitant]
     Active Substance: CLOBETASOL
  4. CALCIUM WITH VIT D [Concomitant]
  5. OMEGA 3 [Concomitant]
     Active Substance: OMEGA-3 FATTY ACIDS
  6. CRESTOR [Suspect]
     Active Substance: ROSUVASTATIN CALCIUM
     Indication: BLOOD TRIGLYCERIDES INCREASED
     Dosage: 5 MG QAM ONCE DAILY TAKEN BY MOUTH
     Route: 048
  7. MAGNESIUM [Concomitant]
     Active Substance: MAGNESIUM
  8. HYDROXYZINE PAMOATE. [Concomitant]
     Active Substance: HYDROXYZINE PAMOATE
  9. VIT B COMPLEX [Concomitant]
  10. LOPERAMIDE [Concomitant]
     Active Substance: LOPERAMIDE

REACTIONS (5)
  - Paraesthesia [None]
  - Muscle contractions involuntary [None]
  - Hypoaesthesia [None]
  - Muscle spasms [None]
  - Myalgia [None]
